FAERS Safety Report 25376987 (Version 1)
Quarter: 2025Q2

REPORT INFORMATION
  Report Type: Spontaneous
  Country: US (occurrence: US)
  Receive Date: 20250530
  Receipt Date: 20250530
  Transmission Date: 20250716
  Serious: No
  Sender: ROCHE
  Company Number: US-ROCHE-10000282668

PATIENT
  Age: 90 Year
  Sex: Female

DRUGS (2)
  1. ACTEMRA ACTPEN [Suspect]
     Active Substance: TOCILIZUMAB
     Indication: Rheumatoid vasculitis
     Dosage: INJECT THE CONTENTS OF ONE DEVICE UNDER THE SKIN ONCE WEEKLY (EVERY 7 DAYS)
     Route: 058
     Dates: start: 2025
  2. ACTEMRA [Suspect]
     Active Substance: TOCILIZUMAB
     Indication: Rheumatoid vasculitis
     Route: 042
     Dates: start: 2024

REACTIONS (5)
  - Device defective [Unknown]
  - Intentional product misuse [Unknown]
  - Off label use [Unknown]
  - Needle issue [Unknown]
  - No adverse event [Unknown]
